FAERS Safety Report 8114153-5 (Version None)
Quarter: 2012Q1

REPORT INFORMATION
  Report Type: 
  Country: None (occurrence: None)
  Receive Date: 20120205
  Receipt Date: 20120126
  Transmission Date: 20120608
  Serious: Yes (Hospitalization)
  Sender: FDA-Public Use
  Company Number: PHHY2012LT007234

PATIENT
  Age: 51 Year
  Sex: Female

DRUGS (4)
  1. AMOXICILLIN AND CLAVULANATE POTASSIUM [Suspect]
     Indication: PNEUMONIA
     Dosage: 875125 MG, BID
     Route: 048
     Dates: start: 20110930, end: 20111008
  2. WOBENZYM [Concomitant]
     Indication: PNEUMONIA
     Dosage: 3 DF, TID
     Dates: start: 20110930, end: 20111008
  3. BIFOLAC [Concomitant]
     Dosage: 2 DF, UNK
     Route: 048
     Dates: start: 20110930, end: 20111008
  4. ANTIBIOTICS [Concomitant]

REACTIONS (9)
  - PRURITUS [None]
  - BARRETT'S OESOPHAGUS [None]
  - CHOLECYSTITIS [None]
  - HEPATITIS [None]
  - YELLOW SKIN [None]
  - GASTROOESOPHAGEAL REFLUX DISEASE [None]
  - ABDOMINAL PAIN UPPER [None]
  - OCULAR ICTERUS [None]
  - HYPERHIDROSIS [None]
